FAERS Safety Report 12798375 (Version 1)
Quarter: 2016Q3

REPORT INFORMATION
  Report Type: Spontaneous
  Country: US (occurrence: US)
  Receive Date: 20160930
  Receipt Date: 20160930
  Transmission Date: 20161109
  Serious: No
  Sender: FDA-Public Use
  Company Number: None

PATIENT
  Age: 22 Year
  Sex: Female

DRUGS (4)
  1. GENERIC ZOLOFT [Concomitant]
     Active Substance: SERTRALINE HYDROCHLORIDE
  2. CAMRESE LO [Concomitant]
  3. GENERIC IMITREX [Concomitant]
  4. PAREMYD [Suspect]
     Active Substance: HYDROXYAMPHETAMINE HYDROBROMIDE\TROPICAMIDE

REACTIONS (6)
  - Eye inflammation [None]
  - Eye irritation [None]
  - Eye pruritus [None]
  - Eyelid oedema [None]
  - Eyelid pain [None]
  - Eye discharge [None]

NARRATIVE: CASE EVENT DATE: 20160923
